FAERS Safety Report 7554621-8 (Version None)
Quarter: 2011Q2

REPORT INFORMATION
  Report Type: 
  Country: None (occurrence: None)
  Receive Date: 20110617
  Receipt Date: 20110606
  Transmission Date: 20111010
  Serious: Yes (Hospitalization)
  Sender: FDA-Public Use
  Company Number: JP-JNJFOC-20110503357

PATIENT
  Sex: Male
  Weight: 40 kg

DRUGS (14)
  1. REMICADE [Suspect]
     Route: 042
     Dates: start: 20110324
  2. RABEPRAZOLE SODIUM [Concomitant]
     Indication: PROPHYLAXIS
     Route: 048
     Dates: start: 20110215
  3. RIZABEN [Concomitant]
     Indication: CROHN'S DISEASE
     Route: 048
  4. TOYOFAROL [Concomitant]
     Indication: VITAMIN SUPPLEMENTATION
     Dosage: 0.25 RG DAILY
     Route: 048
  5. CALCIUM LACTATE [Concomitant]
     Indication: MINERAL SUPPLEMENTATION
     Dosage: 3.0 GM DAILY
     Route: 048
  6. URSO 250 [Concomitant]
     Indication: PROPHYLAXIS
     Route: 048
  7. METHYCOBAL [Concomitant]
     Indication: VITAMIN SUPPLEMENTATION
     Dosage: 750 RG DAILY
     Route: 048
  8. LEBENIN [Concomitant]
     Indication: PROPHYLAXIS
     Dosage: 3.0 DF
  9. REMICADE [Suspect]
     Indication: CROHN'S DISEASE
     Route: 042
  10. DAI-KENCHU-TO [Concomitant]
     Indication: CROHN'S DISEASE
     Dosage: 7.5 GM DAILY
     Route: 048
     Dates: start: 20110328
  11. PENTASA [Concomitant]
     Indication: CROHN'S DISEASE
     Route: 048
  12. REMICADE [Suspect]
     Route: 042
     Dates: start: 20110207
  13. DICETAMIN [Concomitant]
     Indication: VITAMIN SUPPLEMENTATION
     Route: 048
  14. ELENTAL [Concomitant]
     Indication: CROHN'S DISEASE
     Dosage: 1200 KCAL/DAY

REACTIONS (5)
  - PNEUMONIA CRYPTOCOCCAL [None]
  - ANTIBIOTIC RESISTANT STAPHYLOCOCCUS TEST [None]
  - PSEUDOMONAS INFECTION [None]
  - ILEAL STENOSIS [None]
  - FISTULA [None]
